FAERS Safety Report 16920596 (Version 1)
Quarter: 2019Q4

REPORT INFORMATION
  Report Type: Spontaneous
  Country: US (occurrence: US)
  Receive Date: 20190823
  Receipt Date: 20190823
  Transmission Date: 20200122
  Serious: No
  Sender: FDA-Public Use
  Company Number: None

PATIENT

DRUGS (2)
  1. CLONAZEPAM 2MG [Suspect]
     Active Substance: CLONAZEPAM
  2. QUETIAPINE 50MG [Suspect]
     Active Substance: QUETIAPINE

REACTIONS (2)
  - Wrong patient received product [None]
  - Drug dispensed to wrong patient [None]
